FAERS Safety Report 25367910 (Version 2)
Quarter: 2025Q4

REPORT INFORMATION
  Report Type: Report from Study
  Country: US (occurrence: US)
  Receive Date: 20250528
  Receipt Date: 20251008
  Transmission Date: 20260118
  Serious: Yes (Other)
  Sender: ABBVIE
  Company Number: US-ABBVIE-6300597

PATIENT
  Age: 75 Year
  Sex: Female
  Weight: 88 kg

DRUGS (2)
  1. SKYRIZI [Suspect]
     Active Substance: RISANKIZUMAB-RZAA
     Indication: Psoriasis
     Route: 058
     Dates: start: 20211119
  2. SKYRIZI [Suspect]
     Active Substance: RISANKIZUMAB-RZAA
     Route: 058
     Dates: start: 20211212

REACTIONS (3)
  - Malignant melanoma [Recovered/Resolved]
  - Skin cancer [Recovered/Resolved]
  - Malignant neoplasm of eye [Recovered/Resolved]

NARRATIVE: CASE EVENT DATE: 20250301
